FAERS Safety Report 5787180-0 (Version None)
Quarter: 2008Q2

REPORT INFORMATION
  Report Type: 
  Country: None (occurrence: None)
  Receive Date: 20080625
  Receipt Date: 20070917
  Transmission Date: 20081010
  Serious: No
  Sender: FDA-Public Use
  Company Number: US-ASTRAZENECA-2007UW21921

PATIENT
  Age: 60 Year
  Sex: Female
  Weight: 81.6 kg

DRUGS (3)
  1. PULMICORT FLEXHALER [Suspect]
     Route: 055
     Dates: start: 20070801
  2. NEXIUM [Concomitant]
     Route: 048
  3. RANITIDINE HCL [Concomitant]

REACTIONS (2)
  - ORAL INFECTION [None]
  - RESPIRATORY TRACT IRRITATION [None]
